FAERS Safety Report 8290377-1 (Version None)
Quarter: 2012Q2

REPORT INFORMATION
  Report Type: 
  Country: None (occurrence: None)
  Receive Date: 20120417
  Receipt Date: 20120413
  Transmission Date: 20120825
  Serious: Yes (Hospitalization, Other)
  Sender: FDA-Public Use
  Company Number: US-PFIZER INC-2012055983

PATIENT
  Sex: Male
  Weight: 82 kg

DRUGS (11)
  1. TIMOLOL MALEATE [Concomitant]
     Indication: GLAUCOMA
     Dosage: UNK
  2. PROTONIX [Concomitant]
     Indication: GASTROOESOPHAGEAL REFLUX DISEASE
     Dosage: UNK
  3. NORVASC [Suspect]
     Indication: HYPERTENSION
     Dosage: 10 MG, 1X/DAY
     Route: 048
     Dates: end: 20120201
  4. CARDURA [Suspect]
     Dosage: 4 MG, 1X/DAY
     Route: 048
  5. ALBUTEROL [Concomitant]
     Dosage: UNK
  6. LEVOTHYROXINE [Concomitant]
     Indication: HYPOTHYROIDISM
     Dosage: UNK
  7. HYDRALAZINE [Concomitant]
     Indication: HYPERTENSION
     Dosage: 25 MG, UNK
  8. SYNTHROID [Concomitant]
     Indication: HYPOTHYROIDISM
     Dosage: UNK
  9. CELEBREX [Suspect]
     Indication: ARTHRITIS
     Dosage: 200 MG, 1X/DAY
     Route: 048
  10. TOVIAZ [Suspect]
     Indication: HYPERTONIC BLADDER
     Dosage: 4 MG, 1X/DAY
     Route: 048
     Dates: start: 20111001, end: 20120101
  11. FUROSEMIDE [Concomitant]
     Dosage: UNK

REACTIONS (7)
  - INSOMNIA [None]
  - FLUID RETENTION [None]
  - GENERALISED OEDEMA [None]
  - NEPHROTIC SYNDROME [None]
  - MALAISE [None]
  - GOITRE [None]
  - WEIGHT INCREASED [None]
